FAERS Safety Report 22360934 (Version 1)
Quarter: 2023Q2

REPORT INFORMATION
  Report Type: Spontaneous
  Country: US (occurrence: US)
  Receive Date: 20230524
  Receipt Date: 20230524
  Transmission Date: 20230722
  Serious: Yes (Other)
  Sender: FDA-Public Use
  Company Number: US-PFIZER INC-PV202300090288

PATIENT
  Age: 45 Year
  Sex: Male

DRUGS (1)
  1. NURTEC ODT [Suspect]
     Active Substance: RIMEGEPANT SULFATE
     Dosage: DISSOLVE 1 TABLET ON OR UNDER THE TONGUE EVERY OTHER DAY
     Route: 048

REACTIONS (4)
  - Dyspnoea [Recovered/Resolved]
  - Migraine [Recovering/Resolving]
  - Hypertension [Recovering/Resolving]
  - Feeling abnormal [Recovered/Resolved]
